FAERS Safety Report 22228049 (Version 1)
Quarter: 2023Q2

REPORT INFORMATION
  Report Type: Spontaneous
  Country: US (occurrence: US)
  Receive Date: 20230419
  Receipt Date: 20230419
  Transmission Date: 20230721
  Serious: Yes (Other)
  Sender: FDA-Public Use
  Company Number: US-MYLANLABS-2023M1040678

PATIENT

DRUGS (1)
  1. INSULIN GLARGINE [Suspect]
     Active Substance: INSULIN GLARGINE
     Indication: Product used for unknown indication
     Dosage: UNK
     Route: 058

REACTIONS (22)
  - Suicidal ideation [Unknown]
  - Adverse drug reaction [Unknown]
  - Discomfort [Unknown]
  - Illness [Unknown]
  - Vision blurred [Unknown]
  - Arthralgia [Unknown]
  - Back pain [Unknown]
  - Decreased appetite [Unknown]
  - Myalgia [Unknown]
  - Pain [Unknown]
  - Nausea [Unknown]
  - Nervousness [Unknown]
  - Hyperhidrosis [Unknown]
  - Insomnia [Unknown]
  - Fatigue [Unknown]
  - Vomiting [Unknown]
  - Anxiety [Unknown]
  - Mood altered [Unknown]
  - Headache [Unknown]
  - Confusional state [Unknown]
  - Depression [Unknown]
  - Product substitution issue [Unknown]
